FAERS Safety Report 25251719 (Version 1)
Quarter: 2025Q2

REPORT INFORMATION
  Report Type: Spontaneous
  Country: TH (occurrence: TH)
  Receive Date: 20250429
  Receipt Date: 20250429
  Transmission Date: 20250717
  Serious: Yes (Other)
  Sender: PFIZER
  Company Number: TH-PFIZER INC-PV202500050125

PATIENT
  Age: 64 Year
  Sex: Female

DRUGS (2)
  1. LORLATINIB [Suspect]
     Active Substance: LORLATINIB
     Indication: Non-small cell lung cancer
     Dosage: 100 MG (1 TAB) 1 TIME A DAY
     Route: 048
     Dates: start: 20241119, end: 20241229
  2. LORLATINIB [Suspect]
     Active Substance: LORLATINIB
     Dosage: 100 MG (1 TAB) 1 TIME A DAY
     Route: 048
     Dates: start: 202503, end: 202503

REACTIONS (1)
  - Hallucination [Recovering/Resolving]
